FAERS Safety Report 5382656-2 (Version None)
Quarter: 2007Q3

REPORT INFORMATION
  Report Type: 
  Country: None (occurrence: None)
  Receive Date: 20070710
  Receipt Date: 20070702
  Transmission Date: 20080115
  Serious: Yes (Other)
  Sender: FDA-Public Use
  Company Number: FR-ELI_LILLY_AND_COMPANY-FR200707000875

PATIENT
  Age: 50 Year
  Sex: Male

DRUGS (5)
  1. ZYPREXA [Suspect]
     Dosage: 15 MG, DAILY (1/D)
     Route: 048
     Dates: start: 20040101
  2. AVLOCARDYL [Concomitant]
  3. THERALENE [Concomitant]
  4. LIPANTHYL [Concomitant]
  5. IMOVANE [Concomitant]

REACTIONS (1)
  - EOSINOPHILIA [None]
